FAERS Safety Report 11333845 (Version 2)
Quarter: 2015Q4

REPORT INFORMATION
  Report Type: Report from Study
  Country: NL (occurrence: NL)
  Receive Date: 20150803
  Receipt Date: 20151028
  Transmission Date: 20160304
  Serious: Yes (Other)
  Sender: FDA-Public Use
  Company Number: NL-ABBVIE-14P-114-1269960-00

PATIENT
  Sex: Male
  Weight: 79 kg

DRUGS (16)
  1. LUCRIN [Suspect]
     Active Substance: LEUPROLIDE ACETATE
     Indication: PROSTATE CANCER
     Route: 058
     Dates: start: 20130821
  2. ALENDRONINEZUUR [Concomitant]
     Route: 048
  3. SOLIFENACINE [Concomitant]
     Indication: BLADDER DISORDER
     Route: 048
  4. SUCRALFAAT [Concomitant]
     Indication: PRODUCT USED FOR UNKNOWN INDICATION
  5. SPECIAL DRINK NOS TO GAIN WEIGHT [Concomitant]
     Indication: WEIGHT DECREASED
     Route: 048
  6. AMLODIPINE [Concomitant]
     Active Substance: AMLODIPINE BESYLATE
     Indication: CARDIAC FAILURE
     Route: 048
  7. CARBASALAATCALCIUM [Concomitant]
     Active Substance: CARBASALATE
     Indication: ANTICOAGULANT THERAPY
     Route: 048
  8. OMEPRAZOL [Concomitant]
     Active Substance: OMEPRAZOLE
     Indication: GASTRIC DISORDER
     Dosage: MSR
     Route: 048
  9. ALENDRONINEZUUR [Concomitant]
     Indication: OSTEOPOROSIS PROPHYLAXIS
     Route: 048
  10. OMEPRAZOL [Concomitant]
     Active Substance: OMEPRAZOLE
     Indication: PROPHYLAXIS
  11. ENALAPRIL [Concomitant]
     Active Substance: ENALAPRIL
     Indication: CARDIAC FAILURE
     Route: 048
  12. CHEMOTHERAPEUTICS [Concomitant]
     Active Substance: UNSPECIFIED INGREDIENT
     Indication: PROSTATE CANCER
     Route: 065
  13. DEXAMETHASON [Concomitant]
     Active Substance: DEXAMETHASONE
     Indication: PRODUCT USED FOR UNKNOWN INDICATION
     Route: 048
  14. XTANDI [Concomitant]
     Active Substance: ENZALUTAMIDE
     Indication: PROSTATIC SPECIFIC ANTIGEN INCREASED
     Route: 048
  15. PREDNISOLON [Concomitant]
     Active Substance: PREDNISOLONE
     Indication: PRODUCT USED FOR UNKNOWN INDICATION
     Route: 048
  16. SIMVASTATINE [Concomitant]
     Active Substance: SIMVASTATIN
     Indication: HYPERCHOLESTEROLAEMIA
     Route: 048

REACTIONS (4)
  - Prostatic specific antigen increased [Not Recovered/Not Resolved]
  - Metastases to lymph nodes [Not Recovered/Not Resolved]
  - Drug ineffective [Unknown]
  - Weight decreased [Recovered/Resolved]
